FAERS Safety Report 7237441-3 (Version None)
Quarter: 2011Q1

REPORT INFORMATION
  Report Type: 
  Country: None (occurrence: None)
  Receive Date: 20110121
  Receipt Date: 20110113
  Transmission Date: 20110831
  Serious: No
  Sender: FDA-Public Use
  Company Number: US-B.I. PHARMACEUTICALS,INC./RIDGEFIELD-2011-BP-01234BP

PATIENT
  Sex: Female

DRUGS (13)
  1. LORAZEPAM [Concomitant]
     Indication: ANXIETY
  2. DILTIAZEM [Concomitant]
     Indication: ATRIAL FIBRILLATION
  3. ALLOPURINOL [Concomitant]
     Indication: GOUT
  4. POTASSIUM [Concomitant]
     Indication: PROPHYLAXIS
  5. MULTIVITAMIN [Concomitant]
     Indication: PROPHYLAXIS
  6. LISINOPRIL [Concomitant]
     Indication: HYPERTENSION
  7. AMIODARONE [Concomitant]
     Indication: ATRIAL FIBRILLATION
  8. FUROSEMIDE [Concomitant]
     Indication: CARDIAC FAILURE CONGESTIVE
  9. METFORMIN [Concomitant]
     Indication: DIABETES MELLITUS
  10. STOOL SOFTENERS [Concomitant]
     Indication: CONSTIPATION
  11. PRADAXA [Suspect]
     Indication: ATRIAL FIBRILLATION
     Dosage: 300 MG
     Route: 048
     Dates: start: 20101214
  12. LOVASTATIN [Concomitant]
     Indication: BLOOD CHOLESTEROL INCREASED
  13. GLYBURIDE [Concomitant]
     Indication: DIABETES MELLITUS

REACTIONS (2)
  - NAUSEA [None]
  - DYSPNOEA [None]
